FAERS Safety Report 25716885 (Version 2)
Quarter: 2025Q4

REPORT INFORMATION
  Report Type: Spontaneous
  Country: US (occurrence: US)
  Receive Date: 20250822
  Receipt Date: 20251119
  Transmission Date: 20260118
  Serious: No
  Sender: AZURITY PHARMACEUTICALS
  Company Number: US-AZURITY PHARMACEUTICALS, INC.-AZR202506-001858

PATIENT
  Sex: Female

DRUGS (3)
  1. DANZITEN [Suspect]
     Active Substance: NILOTINIB
     Indication: Philadelphia positive chronic myeloid leukaemia
     Dosage: 142 MILLIGRAM, BID
     Route: 065
     Dates: start: 20250610
  2. ROSUVASTATIN [Concomitant]
     Active Substance: ROSUVASTATIN
     Indication: Blood cholesterol
     Dosage: 5 MILLIGRAM MORNING
     Route: 065
  3. URSODIOL [Concomitant]
     Active Substance: URSODIOL
     Indication: Cholelithiasis
     Dosage: 300 MILLIGRAM WITH EVERY MEAL
     Route: 065

REACTIONS (10)
  - Pyrexia [Unknown]
  - Blood pressure fluctuation [Recovered/Resolved]
  - Jaundice [Unknown]
  - Rash [Recovered/Resolved]
  - Alopecia [Recovered/Resolved]
  - Swelling face [Recovered/Resolved]
  - White blood cell count decreased [Recovered/Resolved]
  - Muscle spasms [Recovered/Resolved]
  - Pruritus [Recovered/Resolved]
  - Headache [Unknown]
